FAERS Safety Report 17979095 (Version 1)
Quarter: 2020Q3

REPORT INFORMATION
  Report Type: Spontaneous
  Country: US (occurrence: US)
  Receive Date: 20200703
  Receipt Date: 20200703
  Transmission Date: 20201103
  Serious: Yes (Other)
  Sender: FDA-Public Use
  Company Number: US-MACLEODS PHARMACEUTICALS US LTD-MAC2020027040

PATIENT

DRUGS (3)
  1. TACROLIMUS. [Suspect]
     Active Substance: TACROLIMUS
     Indication: RASH PUSTULAR
     Dosage: 0.1 PERCENT, QD
     Route: 065
  2. CLOBETASOL 0.05 % W/W [Suspect]
     Active Substance: CLOBETASOL
     Dosage: 0.05 PERCENT, QD
     Route: 065
  3. CLOBETASOL 0.05 % W/W [Suspect]
     Active Substance: CLOBETASOL
     Indication: RASH PUSTULAR
     Dosage: 0.05 PERCENT, QD, CREAM
     Route: 065

REACTIONS (1)
  - Herpes zoster reactivation [Recovered/Resolved]
